FAERS Safety Report 8964512 (Version 1)
Quarter: 2012Q4

REPORT INFORMATION
  Report Type: Report from Study
  Country: US (occurrence: US)
  Receive Date: 20121213
  Receipt Date: 20121213
  Transmission Date: 20130627
  Serious: Yes (Other)
  Sender: FDA-Public Use
  Company Number: US-ABBOTT-12P-163-0975844-00

PATIENT
  Sex: Female

DRUGS (2)
  1. HUMIRA PEN [Suspect]
     Indication: RHEUMATOID ARTHRITIS
     Route: 058
     Dates: start: 201203, end: 201207
  2. HUMIRA PEN [Suspect]
     Route: 058

REACTIONS (2)
  - Meniscus injury [Unknown]
  - Arthritis [Unknown]
